FAERS Safety Report 5636085-4 (Version None)
Quarter: 2008Q1

REPORT INFORMATION
  Report Type: 
  Country: None (occurrence: None)
  Receive Date: 20080220
  Receipt Date: 20080220
  Transmission Date: 20080703
  Serious: Yes (Life-Threatening)
  Sender: FDA-Public Use
  Company Number: None

PATIENT
  Age: 37 Year
  Sex: Male
  Weight: 95.5 kg

DRUGS (2)
  1. ANGIOMAX [Suspect]
     Indication: THERAPEUTIC PROCEDURE
     Dosage: 70 MG ONCE IV BOLUS
     Route: 040
     Dates: start: 20070214
  2. ANGIOMAX [Suspect]
     Dosage: 165 MG/HR DRIP IV DRIP
     Route: 041

REACTIONS (3)
  - CORONARY ARTERY THROMBOSIS [None]
  - DRUG INEFFECTIVE [None]
  - PROCEDURAL COMPLICATION [None]
